FAERS Safety Report 8777763 (Version 2)
Quarter: 2012Q4

REPORT INFORMATION
  Report Type: 
  Country: US (occurrence: US)
  Receive Date: 20120917
  Receipt Date: 20121031
  Transmission Date: 20130627
  Serious: Yes (Other)
  Sender: FDA-Public Use
  Company Number: US-ASTRAZENECA-2012SE70654

PATIENT
  Age: 73 Year
  Sex: Male

DRUGS (1)
  1. SYMBICORT PMDI [Suspect]
     Dosage: 160 UNKNOWN FREQUENCY
     Route: 055

REACTIONS (9)
  - Chronic obstructive pulmonary disease [Unknown]
  - Tendon rupture [Unknown]
  - Rotator cuff syndrome [Unknown]
  - Dyspnoea [Unknown]
  - Lung infection [Unknown]
  - Memory impairment [Unknown]
  - Neck pain [Unknown]
  - Musculoskeletal pain [Unknown]
  - Cough [Unknown]
